FAERS Safety Report 11616416 (Version 2)
Quarter: 2021Q3

REPORT INFORMATION
  Report Type: Report from Study
  Country: DE (occurrence: DE)
  Receive Date: 20151009
  Receipt Date: 20210728
  Transmission Date: 20211014
  Serious: Yes (Death, Other)
  Sender: FDA-Public Use
  Company Number: DE-SHIRE-DE201512591

PATIENT
  Age: 21 Year
  Sex: Male

DRUGS (2)
  1. IDURSULFASE [Suspect]
     Active Substance: IDURSULFASE
     Dosage: 0.53 MILLIGRAM/KILOGRAM, 1/WEEK
     Route: 042
     Dates: start: 20121119
  2. IDURSULFASE [Suspect]
     Active Substance: IDURSULFASE
     Indication: MUCOPOLYSACCHARIDOSIS II
     Dosage: 0.5 MG/KG, 1X/WEEK
     Route: 041
     Dates: start: 20060906

REACTIONS (1)
  - Death [Fatal]

NARRATIVE: CASE EVENT DATE: 20140605
